FAERS Safety Report 7432330-3 (Version None)
Quarter: 2011Q2

REPORT INFORMATION
  Report Type: 
  Country: None (occurrence: None)
  Receive Date: 20110422
  Receipt Date: 20110415
  Transmission Date: 20111010
  Serious: Yes (Life-Threatening, Other)
  Sender: FDA-Public Use
  Company Number: JP-JNJFOC-20101104363

PATIENT
  Age: 80 Year
  Sex: Female
  Weight: 40.2 kg

DRUGS (9)
  1. FLORID [Suspect]
     Indication: ORAL CANDIDIASIS
     Route: 048
  2. DIGOSIN [Concomitant]
     Indication: ILL-DEFINED DISORDER
     Route: 048
  3. GOREISAN [Concomitant]
     Indication: ILL-DEFINED DISORDER
     Route: 048
  4. DEPAKENE [Concomitant]
     Indication: ILL-DEFINED DISORDER
     Route: 048
  5. FLORID [Suspect]
     Route: 048
  6. ACTOS [Concomitant]
     Indication: ILL-DEFINED DISORDER
     Route: 048
  7. WARFARIN POTASSIUM [Interacting]
     Indication: ILL-DEFINED DISORDER
     Route: 048
  8. VERAPAMIL HCL [Concomitant]
     Indication: ILL-DEFINED DISORDER
     Route: 048
  9. ITRIZOLE [Suspect]
     Indication: ORAL CANDIDIASIS
     Route: 048

REACTIONS (4)
  - HAEMOGLOBIN DECREASED [None]
  - DRUG INTERACTION [None]
  - RED BLOOD CELL COUNT DECREASED [None]
  - INTERNATIONAL NORMALISED RATIO INCREASED [None]
